FAERS Safety Report 9441383 (Version 1)
Quarter: 2013Q3

REPORT INFORMATION
  Report Type: Spontaneous
  Country: TR (occurrence: TR)
  Receive Date: 20130805
  Receipt Date: 20130805
  Transmission Date: 20140515
  Serious: Yes (Life-Threatening, Hospitalization)
  Sender: FDA-Public Use
  Company Number: TR-B.I. PHARMACEUTICALS,INC./RIDGEFIELD-2013-BI-23185TK

PATIENT
  Age: 88 Year
  Sex: Male

DRUGS (6)
  1. PEXOLA [Suspect]
     Indication: PARKINSON^S DISEASE
     Dosage: 0.75 MG
     Route: 048
     Dates: start: 20130215, end: 20130715
  2. PEXOLA [Suspect]
     Dosage: 3 MG
     Route: 048
     Dates: end: 20130715
  3. STALEVO [Concomitant]
     Indication: PARKINSON^S DISEASE
     Route: 048
     Dates: start: 20080115, end: 20130715
  4. ARICEPT [Concomitant]
     Indication: DEMENTIA ALZHEIMER^S TYPE
     Route: 048
  5. DEMAX [Concomitant]
     Indication: DEMENTIA ALZHEIMER^S TYPE
     Route: 048
  6. ORAL ANTIDIABETIC [Concomitant]
     Indication: DIABETES MELLITUS
     Route: 048

REACTIONS (1)
  - Pericardial effusion [Recovered/Resolved]
